FAERS Safety Report 7955474-6 (Version None)
Quarter: 2011Q4

REPORT INFORMATION
  Report Type: 
  Country: None (occurrence: None)
  Receive Date: 20111202
  Receipt Date: 20111121
  Transmission Date: 20120403
  Serious: Yes (Hospitalization)
  Sender: FDA-Public Use
  Company Number: BR-ROCHE-1007020

PATIENT
  Sex: Female

DRUGS (3)
  1. XOLAIR [Suspect]
     Indication: DYSPNOEA
  2. BUDESONIDE [Concomitant]
  3. XOLAIR [Suspect]
     Indication: BRONCHITIS
     Route: 058
     Dates: start: 20100101

REACTIONS (3)
  - ASTHMA [None]
  - DYSPNOEA [None]
  - BRONCHITIS [None]
